FAERS Safety Report 5321010-6 (Version None)
Quarter: 2007Q1

REPORT INFORMATION
  Report Type: 
  Country: None (occurrence: None)
  Receive Date: 20070209
  Receipt Date: 20060726
  Transmission Date: 20070707
  Serious: Yes (Disabling, Other)
  Sender: FDA-Public Use
  Company Number: CTI_0901_2006

PATIENT
  Age: 59 Year
  Sex: Male

DRUGS (4)
  1. ZYFLO [Suspect]
     Indication: ASTHMA
     Dosage: 600 MG PO
     Route: 048
     Dates: start: 20060419, end: 20060620
  2. ZYFLO [Suspect]
     Indication: COUGH
     Dosage: 600 MG PO
     Route: 048
     Dates: start: 20060419, end: 20060620
  3. LIPITOR [Concomitant]
  4. LISINOPRIL [Concomitant]

REACTIONS (4)
  - ALANINE AMINOTRANSFERASE INCREASED [None]
  - ARTHRALGIA [None]
  - ASPARTATE AMINOTRANSFERASE INCREASED [None]
  - MYALGIA [None]
